FAERS Safety Report 7159223-3 (Version None)
Quarter: 2010Q4

REPORT INFORMATION
  Report Type: 
  Country: None (occurrence: None)
  Receive Date: 20101214
  Receipt Date: 20100811
  Transmission Date: 20110411
  Serious: No
  Sender: FDA-Public Use
  Company Number: US-ASTRAZENECA-2010SE37763

PATIENT
  Age: 23878 Day
  Sex: Female
  Weight: 89.8 kg

DRUGS (3)
  1. CRESTOR [Suspect]
     Indication: HYPERCHOLESTEROLAEMIA
     Route: 048
     Dates: start: 20100721
  2. INSULIN [Concomitant]
  3. BLOOD PRESSURE MEDICATION [Concomitant]

REACTIONS (3)
  - ASTHENIA [None]
  - FEELING ABNORMAL [None]
  - TREMOR [None]
